FAERS Safety Report 6681079-3 (Version None)
Quarter: 2010Q2

REPORT INFORMATION
  Report Type: 
  Country: None (occurrence: None)
  Receive Date: 20100414
  Receipt Date: 20100402
  Transmission Date: 20101027
  Serious: Yes (Hospitalization)
  Sender: FDA-Public Use
  Company Number: US-AMGEN-KDL403692

PATIENT
  Sex: Male
  Weight: 72.6 kg

DRUGS (4)
  1. PROCRIT [Suspect]
     Indication: ANAEMIA
     Dates: start: 20080101, end: 20090501
  2. NEUPOGEN [Concomitant]
     Indication: DRUG USE FOR UNKNOWN INDICATION
     Dates: start: 20080101
  3. RAPAMUNE [Concomitant]
     Dates: start: 20060101
  4. CELLCEPT [Concomitant]
     Dates: start: 20060101

REACTIONS (3)
  - HAEMOGLOBIN DECREASED [None]
  - IRON OVERLOAD [None]
  - PLATELET COUNT DECREASED [None]
